FAERS Safety Report 6146940-7 (Version None)
Quarter: 2009Q2

REPORT INFORMATION
  Report Type: 
  Country: None (occurrence: None)
  Receive Date: 20090407
  Receipt Date: 20090326
  Transmission Date: 20091009
  Serious: Yes (Hospitalization)
  Sender: FDA-Public Use
  Company Number: CH-SANOFI-SYNTHELABO-A01200903197

PATIENT
  Age: 71 Year
  Sex: Female

DRUGS (15)
  1. CALCIMAGON-D3 [Concomitant]
     Indication: DRUG USE FOR UNKNOWN INDICATION
     Route: 048
  2. VITARUBIN [Concomitant]
     Indication: DRUG USE FOR UNKNOWN INDICATION
     Route: 051
  3. METHOTREXAT RIDUPHARM [Concomitant]
     Indication: DRUG USE FOR UNKNOWN INDICATION
     Route: 042
  4. LIQUAEMIN INJ [Concomitant]
     Indication: DRUG USE FOR UNKNOWN INDICATION
     Route: 017
     Dates: start: 20080908, end: 20080919
  5. DURAGESIC-100 [Concomitant]
     Indication: DRUG USE FOR UNKNOWN INDICATION
     Route: 062
  6. ACIDUM FOLICUM HAENSELER [Concomitant]
     Indication: DRUG USE FOR UNKNOWN INDICATION
     Route: 048
  7. NEXIUM [Concomitant]
     Indication: DRUG USE FOR UNKNOWN INDICATION
     Dosage: 40 MG
     Route: 048
  8. TOLVON [Concomitant]
     Indication: ANTIDEPRESSANT THERAPY
     Route: 048
  9. LIVIAL [Concomitant]
     Indication: DRUG USE FOR UNKNOWN INDICATION
     Route: 048
  10. PREDNISONE [Concomitant]
     Indication: DRUG USE FOR UNKNOWN INDICATION
     Dosage: 7.5 MG
     Route: 048
  11. ZYPREXA [Interacting]
     Indication: SUICIDE ATTEMPT
     Route: 048
     Dates: start: 20080905, end: 20080905
  12. REMERON [Interacting]
     Indication: SUICIDE ATTEMPT
     Route: 048
     Dates: start: 20080905, end: 20080905
  13. ZOLPIDEM [Suspect]
     Indication: SUICIDE ATTEMPT
     Route: 048
     Dates: start: 20080905, end: 20080905
  14. ZYPREXA [Concomitant]
     Indication: BIPOLAR DISORDER
     Route: 048
  15. ZOLPIDEM [Concomitant]
     Indication: SLEEP DISORDER
     Route: 048

REACTIONS (4)
  - ELECTROCARDIOGRAM QT PROLONGED [None]
  - LOSS OF CONSCIOUSNESS [None]
  - MULTIPLE DRUG OVERDOSE INTENTIONAL [None]
  - POTENTIATING DRUG INTERACTION [None]
